FAERS Safety Report 16994907 (Version 2)
Quarter: 2019Q4

REPORT INFORMATION
  Report Type: Spontaneous
  Country: US (occurrence: US)
  Receive Date: 20191105
  Receipt Date: 20191213
  Transmission Date: 20200122
  Serious: No
  Sender: FDA-Public Use
  Company Number: US-PFIZER INC-2019472624

PATIENT
  Age: 7 Year
  Sex: Female

DRUGS (2)
  1. GENOTROPIN [Suspect]
     Active Substance: SOMATROPIN
     Indication: BODY HEIGHT BELOW NORMAL
     Dosage: 0.9 MG, 1X/DAY (ONCE DAILY)
     Route: 058
  2. GENOTROPIN [Suspect]
     Active Substance: SOMATROPIN
     Indication: PRADER-WILLI SYNDROME

REACTIONS (2)
  - Increased appetite [Unknown]
  - Behaviour disorder [Unknown]
